FAERS Safety Report 10265871 (Version 4)
Quarter: 2014Q3

REPORT INFORMATION
  Report Type: Report from Study
  Country: US (occurrence: US)
  Receive Date: 20140627
  Receipt Date: 20140722
  Transmission Date: 20150326
  Serious: Yes (Hospitalization)
  Sender: FDA-Public Use
  Company Number: US-EXELIXIS-XL18414004429

PATIENT
  Age: 83 Year
  Sex: Male
  Weight: 79.91 kg

DRUGS (7)
  1. LOPRESSOR [Concomitant]
     Active Substance: METOPROLOL TARTRATE
  2. XL184 [Suspect]
     Active Substance: CABOZANTINIB
     Indication: PROSTATE CANCER
     Dosage: 20 MG, QD
     Route: 048
     Dates: start: 20140414, end: 20140627
  3. XL184 [Suspect]
     Active Substance: CABOZANTINIB
     Indication: PROSTATE CANCER
     Dosage: 1000 MG, QD
     Route: 048
     Dates: start: 20140414, end: 2014
  4. XARELTO [Concomitant]
     Active Substance: RIVAROXABAN
  5. METOPROLOL [Concomitant]
     Active Substance: METOPROLOL
  6. XL184 [Suspect]
     Active Substance: CABOZANTINIB
     Dosage: 250 MG, QD
     Route: 048
     Dates: start: 2014
  7. XL184 [Suspect]
     Active Substance: CABOZANTINIB
     Indication: PROSTATE CANCER
     Dosage: 5 MG, BID
     Route: 048
     Dates: start: 20140404

REACTIONS (1)
  - Pulmonary embolism [Recovered/Resolved with Sequelae]

NARRATIVE: CASE EVENT DATE: 20140614
